FAERS Safety Report 18032519 (Version 1)
Quarter: 2020Q3

REPORT INFORMATION
  Report Type: Spontaneous
  Country: GB (occurrence: GB)
  Receive Date: 20200716
  Receipt Date: 20200716
  Transmission Date: 20201103
  Serious: Yes (Hospitalization)
  Sender: FDA-Public Use
  Company Number: GB-VERTEX PHARMACEUTICALS-2020-014544

PATIENT
  Age: 33 Year
  Sex: Male
  Weight: 73 kg

DRUGS (12)
  1. SYMKEVI [Suspect]
     Active Substance: IVACAFTOR\TEZACAFTOR
     Indication: CYSTIC FIBROSIS
     Dosage: EVERY MORNING (100MG/150MG) TABLETS
     Route: 048
     Dates: start: 20200406
  2. AZITHROMYCIN ANHYDROUS. [Concomitant]
     Active Substance: AZITHROMYCIN ANHYDROUS
  3. MONTELUKAST [Concomitant]
     Active Substance: MONTELUKAST SODIUM
  4. PULMOZYME [Concomitant]
     Active Substance: DORNASE ALFA
  5. VITAMIN A AND D [Concomitant]
     Active Substance: LANOLIN\PETROLATUM
  6. ALPHA?TOCOPHEROL [Concomitant]
     Active Substance: .ALPHA.-TOCOPHEROL
  7. KALYDECO [Suspect]
     Active Substance: IVACAFTOR
     Indication: CYSTIC FIBROSIS
     Dosage: IN THE EVENING, 150 MG
     Route: 048
     Dates: start: 20200406
  8. TOBI [Concomitant]
     Active Substance: TOBRAMYCIN
  9. CREON [Concomitant]
     Active Substance: PANCRELIPASE AMYLASE\PANCRELIPASE LIPASE\PANCRELIPASE PROTEASE
     Dosage: UNK
  10. FLUCLOXACILLIN [Concomitant]
     Active Substance: FLUCLOXACILLIN
  11. CALCICHEW D3 [Concomitant]
     Active Substance: CALCIUM\CHOLECALCIFEROL
  12. SODIUM CHLORIDE. [Concomitant]
     Active Substance: SODIUM CHLORIDE

REACTIONS (2)
  - Distal intestinal obstruction syndrome [Recovered/Resolved]
  - Abdominal pain [Unknown]

NARRATIVE: CASE EVENT DATE: 20200620
